FAERS Safety Report 9431877 (Version 1)
Quarter: 2013Q3

REPORT INFORMATION
  Report Type: Report from Study
  Country: BR (occurrence: BR)
  Receive Date: 20130731
  Receipt Date: 20130731
  Transmission Date: 20140515
  Serious: Yes (Other)
  Sender: FDA-Public Use
  Company Number: PHHY2013BR080228

PATIENT
  Sex: Female
  Weight: 59 kg

DRUGS (4)
  1. TRILEPTAL [Suspect]
     Indication: DEMENTIA ALZHEIMER^S TYPE
     Dosage: 300 MG, BID (EVERY 12 HOURS)
     Route: 048
  2. TRILEPTAL [Suspect]
     Indication: OFF LABEL USE
  3. EPEZ [Concomitant]
     Dosage: 10 MG, UNK
  4. MEMANTINE [Concomitant]
     Dosage: 10 MG, UNK

REACTIONS (5)
  - Convulsion [Recovering/Resolving]
  - Dementia Alzheimer^s type [Recovering/Resolving]
  - Dizziness [Recovering/Resolving]
  - Vomiting [Recovering/Resolving]
  - Wrong technique in drug usage process [Unknown]
